FAERS Safety Report 8758945 (Version 2)
Quarter: 2012Q4

REPORT INFORMATION
  Report Type: Report from Study
  Country: JP (occurrence: JP)
  Receive Date: 20120829
  Receipt Date: 20121012
  Transmission Date: 20130627
  Serious: Yes (Other)
  Sender: FDA-Public Use
  Company Number: JP-009507513-2012SP034985

PATIENT
  Age: 49 Year
  Sex: Male
  Weight: 60 kg

DRUGS (13)
  1. PEGINTERFERON ALFA-2B [Suspect]
     Indication: HEPATITIS C
     Dosage: 1.0 micrograms/ kilograms/week
     Route: 058
     Dates: start: 20120412, end: 20120412
  2. PEGINTERFERON ALFA-2B [Suspect]
     Dosage: 40 micrograms/kilograms/week
     Route: 058
     Dates: start: 20120419
  3. PEGINTERFERON ALFA-2B [Suspect]
     Dosage: 50 micrograms/kilograms/week
     Route: 058
     Dates: start: 20120426
  4. PEGINTERFERON ALFA-2B [Suspect]
     Dosage: 1.0 Microgram/kilogram/week
     Route: 058
     Dates: end: 20120531
  5. PEGINTERFERON ALFA-2B [Suspect]
     Dosage: 1.0 Microgram/kilogram/week
     Route: 058
     Dates: start: 20120621
  6. REBETOL [Suspect]
     Indication: HEPATITIS C
     Dosage: 600 mg, qd
     Route: 048
     Dates: start: 20120412, end: 20120606
  7. REBETOL [Suspect]
     Dosage: 600 mg, qd
     Route: 048
     Dates: start: 20120621
  8. TELAVIC [Suspect]
     Indication: HEPATITIS C
     Dosage: 1500 mg, qd
     Route: 048
     Dates: start: 20120412, end: 20120606
  9. TELAVIC [Suspect]
     Dosage: 1500 mg, qd
     Route: 048
     Dates: start: 20120621, end: 20120704
  10. METHYCOBAL [Concomitant]
     Dosage: 1500 microgram, qd
     Route: 048
     Dates: start: 20120419
  11. LAC-B [Concomitant]
     Dosage: 3 g, qd
     Route: 048
     Dates: start: 20120426
  12. MS ONSHIPPU [Concomitant]
     Dosage: UNK
     Route: 061
     Dates: start: 20120502
  13. MYONAL [Concomitant]
     Dosage: 150 mg, qd
     Route: 048
     Dates: start: 20120510

REACTIONS (2)
  - Neutrophil count decreased [Not Recovered/Not Resolved]
  - Hypothyroidism [Not Recovered/Not Resolved]
